FAERS Safety Report 6189603-4 (Version None)
Quarter: 2009Q2

REPORT INFORMATION
  Report Type: 
  Country: None (occurrence: None)
  Receive Date: 20090512
  Receipt Date: 20090512
  Transmission Date: 20091009
  Serious: Yes (Other)
  Sender: FDA-Public Use
  Company Number: None

PATIENT
  Sex: Female
  Weight: 72.5755 kg

DRUGS (1)
  1. RISPERIDONE [Suspect]
     Indication: DEPRESSION
     Dosage: ONE 1 MG TABLET BEDTIME PO
     Route: 048
     Dates: start: 20090406, end: 20090507

REACTIONS (3)
  - LACTATION DISORDER [None]
  - MUSCLE TWITCHING [None]
  - SKIN DISCOLOURATION [None]
